FAERS Safety Report 11653621 (Version 1)
Quarter: 2015Q4

REPORT INFORMATION
  Report Type: Spontaneous
  Country: FR (occurrence: FR)
  Receive Date: 20151022
  Receipt Date: 20151022
  Transmission Date: 20160304
  Serious: Yes (Death, Hospitalization)
  Sender: FDA-Public Use
  Company Number: FR-SA-2015SA163937

PATIENT
  Age: 78 Year
  Sex: Female

DRUGS (1)
  1. LOVENOX [Suspect]
     Active Substance: ENOXAPARIN SODIUM
     Route: 058
     Dates: end: 20150327

REACTIONS (3)
  - Wound sepsis [Fatal]
  - Haematoma [Fatal]
  - Anaemia [Fatal]

NARRATIVE: CASE EVENT DATE: 20150324
